FAERS Safety Report 16791998 (Version 1)
Quarter: 2019Q3

REPORT INFORMATION
  Report Type: Spontaneous
  Country: CA (occurrence: CA)
  Receive Date: 20190910
  Receipt Date: 20190910
  Transmission Date: 20191005
  Serious: Yes (Other)
  Sender: FDA-Public Use
  Company Number: CA-TEVA-2019-CA-1106287

PATIENT
  Age: 23 Year
  Sex: Male
  Weight: 93 kg

DRUGS (11)
  1. COGENTIN [Concomitant]
     Active Substance: BENZTROPINE MESYLATE
  2. ATIVAN [Concomitant]
     Active Substance: LORAZEPAM
     Route: 065
  3. ARIPIPRAZOLE. [Suspect]
     Active Substance: ARIPIPRAZOLE
     Indication: SCHIZOPHRENIA
     Dosage: 1 DOSAGE FORMS DAILY;
     Route: 048
  4. RISPERDAL [Suspect]
     Active Substance: RISPERIDONE
     Indication: SCHIZOPHRENIA
     Dosage: 3.5 MILLIGRAM DAILY;
     Route: 048
  5. ATIVAN [Concomitant]
     Active Substance: LORAZEPAM
     Route: 065
  6. PROPRANOLOL [Concomitant]
     Active Substance: PROPRANOLOL HYDROCHLORIDE
  7. SEROQUEL [Concomitant]
     Active Substance: QUETIAPINE FUMARATE
  8. DOXYCYCLINE HYCLATE. [Concomitant]
     Active Substance: DOXYCYCLINE HYCLATE
  9. TRAZODONE [Concomitant]
     Active Substance: TRAZODONE HYDROCHLORIDE
  10. FLUOROMETHOLONE OPHTHALMIC [Concomitant]
  11. HALOPERIDOL. [Concomitant]
     Active Substance: HALOPERIDOL

REACTIONS (5)
  - Poor quality sleep [Unknown]
  - Emotional distress [Unknown]
  - Hallucination, auditory [Unknown]
  - Psychotic disorder [Unknown]
  - Product substitution issue [Unknown]
